FAERS Safety Report 5310625-7 (Version None)
Quarter: 2007Q1

REPORT INFORMATION
  Report Type: 
  Country: None (occurrence: None)
  Receive Date: 20070201
  Receipt Date: 20061219
  Transmission Date: 20070707
  Serious: No
  Sender: FDA-Public Use
  Company Number: 259387

PATIENT
  Age: 52 Year
  Sex: Male

DRUGS (4)
  1. LEVEMIR [Suspect]
     Indication: INSULIN-REQUIRING TYPE II DIABETES MELLITUS
     Dosage: SLIDING SCALE, SUBCUTANEOUS
     Route: 058
  2. AVANDIA (ROSIGLITAZONE MALEATE) CAPSULE [Concomitant]
  3. METFORMIN HCL [Concomitant]
  4. PRINIVIL [Concomitant]

REACTIONS (1)
  - INJECTION SITE REACTION [None]
